FAERS Safety Report 5671387-7 (Version None)
Quarter: 2008Q1

REPORT INFORMATION
  Report Type: 
  Country: None (occurrence: None)
  Receive Date: 20080318
  Receipt Date: 20080306
  Transmission Date: 20080703
  Serious: Yes (Hospitalization)
  Sender: FDA-Public Use
  Company Number: US-PFIZER INC-2008019274

PATIENT
  Sex: Female
  Weight: 80.3 kg

DRUGS (18)
  1. SUTENT [Suspect]
     Indication: RENAL CANCER METASTATIC
     Route: 048
  2. METFORMIN HCL [Concomitant]
     Indication: DIABETES MELLITUS
  3. LOVASTATIN [Concomitant]
     Indication: HYPERCHOLESTEROLAEMIA
     Dates: start: 20040101
  4. HYDROCHLOROTHIAZIDE [Concomitant]
     Indication: HYPERTENSION
     Dates: start: 19940101
  5. VALSARTAN [Concomitant]
     Indication: HYPERTENSION
     Dates: start: 19940101
  6. BONIVA [Concomitant]
     Indication: OSTEOPOROSIS
     Dates: start: 20070501
  7. PROMETHAZINE [Concomitant]
     Indication: NAUSEA
     Dates: start: 20070101
  8. PROMETHAZINE [Concomitant]
     Indication: VOMITING
  9. CALCIUM [Concomitant]
     Indication: SUPPLEMENTATION THERAPY
     Dates: start: 20070501
  10. VITAMIN B-12 [Concomitant]
     Indication: VITAMIN B12 DEFICIENCY
     Dates: start: 20060101
  11. METOPROLOL TARTRATE [Concomitant]
     Indication: HYPERTENSION
     Dates: start: 19940101
  12. STOMATOLOGICALS, MOUTH PREPARATIONS [Concomitant]
     Indication: ORAL PAIN
     Dates: start: 20070627
  13. LOPERAMIDE HYDROCHLORIDE [Concomitant]
     Indication: DIARRHOEA
     Dates: start: 20070704
  14. REGLAN [Concomitant]
     Indication: DYSPHAGIA
     Dates: start: 20070822
  15. LIDODERM [Concomitant]
     Indication: BACK PAIN
     Dates: start: 20070905
  16. FIBRE, DIETARY [Concomitant]
     Dates: start: 20080211
  17. MAGIC MOUTHWASH [Concomitant]
  18. ALL OTHER THERAPEUTIC PRODUCTS [Concomitant]
     Indication: MUCOSAL INFLAMMATION

REACTIONS (1)
  - HYPOGLYCAEMIA [None]
